FAERS Safety Report 4352156-7 (Version None)
Quarter: 2004Q2

REPORT INFORMATION
  Report Type: 
  Country: None (occurrence: None)
  Receive Date: 20040428
  Receipt Date: 20040426
  Transmission Date: 20050107
  Serious: Yes (Hospitalization)
  Sender: FDA-Public Use
  Company Number: 200410480BCC

PATIENT
  Age: 75 Year
  Sex: Female
  Weight: 61.6892 kg

DRUGS (2)
  1. ALKA-SELTZER PLUS COLD EFFERVESCENT TABLET [Suspect]
     Indication: NASOPHARYNGITIS
     Dosage: 500/4/10 MG, ONCE, ORAL
     Route: 048
     Dates: start: 20040124
  2. AMARYL [Concomitant]

REACTIONS (3)
  - BACTERIAL INFECTION [None]
  - DEHYDRATION [None]
  - VOMITING [None]
